FAERS Safety Report 19483309 (Version 3)
Quarter: 2022Q3

REPORT INFORMATION
  Report Type: Report from Study
  Country: CO (occurrence: CO)
  Receive Date: 20210701
  Receipt Date: 20220827
  Transmission Date: 20221027
  Serious: Yes (Other)
  Sender: FDA-Public Use
  Company Number: CO-ABBVIE-21K-036-3971547-00

PATIENT
  Sex: Female
  Weight: 44 kg

DRUGS (2)
  1. HUMIRA [Suspect]
     Active Substance: ADALIMUMAB
     Indication: Rheumatoid arthritis
     Route: 058
     Dates: start: 20180315, end: 20220518
  2. ADALIMUMAB [Suspect]
     Active Substance: ADALIMUMAB
     Indication: Rheumatoid arthritis
     Route: 065
     Dates: start: 20220731

REACTIONS (31)
  - Polyp [Recovered/Resolved]
  - Depression [Not Recovered/Not Resolved]
  - Sneezing [Recovering/Resolving]
  - Oropharyngeal discomfort [Not Recovered/Not Resolved]
  - Illness [Not Recovered/Not Resolved]
  - Blood disorder [Not Recovered/Not Resolved]
  - Suspected COVID-19 [Unknown]
  - Gastric disorder [Recovered/Resolved]
  - Fatigue [Recovering/Resolving]
  - Rhinorrhoea [Recovering/Resolving]
  - Nasal congestion [Recovering/Resolving]
  - Discomfort [Recovered/Resolved]
  - Dyspnoea [Recovering/Resolving]
  - Gastritis [Not Recovered/Not Resolved]
  - Viral infection [Not Recovered/Not Resolved]
  - Nasopharyngitis [Not Recovered/Not Resolved]
  - Anxiety [Not Recovered/Not Resolved]
  - Influenza [Not Recovered/Not Resolved]
  - Dyspepsia [Not Recovered/Not Resolved]
  - Hypertension [Not Recovered/Not Resolved]
  - Anxiety [Recovered/Resolved]
  - Blastocystis infection [Recovered/Resolved]
  - Gastrooesophageal reflux disease [Recovered/Resolved]
  - Abdominal pain [Recovered/Resolved]
  - Nausea [Recovered/Resolved]
  - Discouragement [Recovered/Resolved]
  - Malaise [Recovered/Resolved]
  - Depressed mood [Recovered/Resolved]
  - Feeling abnormal [Not Recovered/Not Resolved]
  - Feeling abnormal [Recovered/Resolved]
  - Weight decreased [Not Recovered/Not Resolved]

NARRATIVE: CASE EVENT DATE: 20210101
